FAERS Safety Report 12143250 (Version 1)
Quarter: 2016Q1

REPORT INFORMATION
  Report Type: Spontaneous
  Country: JP (occurrence: JP)
  Receive Date: 20160304
  Receipt Date: 20160304
  Transmission Date: 20160526
  Serious: Yes (Disabling)
  Sender: FDA-Public Use
  Company Number: JP-TAKEDA-2015TJP022453

PATIENT
  Age: 88 Year
  Sex: Female
  Weight: 40.1 kg

DRUGS (4)
  1. BASEN                              /01290601/ [Concomitant]
     Active Substance: VOGLIBOSE
     Dosage: 0.3 MG, TID
     Route: 048
  2. ROZEREM [Suspect]
     Active Substance: RAMELTEON
     Indication: INSOMNIA
     Dosage: 8 MG, UNK
     Route: 048
     Dates: start: 20151120, end: 20151123
  3. HUMALOG [Concomitant]
     Active Substance: INSULIN LISPRO
     Dosage: 14 IU, UNK
     Route: 058
  4. INSULIN GLARGINE [Concomitant]
     Active Substance: INSULIN GLARGINE
     Dosage: 10 IU, QD
     Route: 058

REACTIONS (3)
  - Hallucination, visual [Recovered/Resolved]
  - Anal incontinence [Recovered/Resolved]
  - Abnormal behaviour [Recovered/Resolved]

NARRATIVE: CASE EVENT DATE: 20151122
